FAERS Safety Report 23813299 (Version 1)
Quarter: 2024Q2

REPORT INFORMATION
  Report Type: Spontaneous
  Country: US (occurrence: US)
  Receive Date: 20240503
  Receipt Date: 20240503
  Transmission Date: 20240716
  Serious: Yes (Disabling, Other)
  Sender: FDA-Public Use
  Company Number: US-BRISTOL-MYERS SQUIBB COMPANY-2024-063935

PATIENT
  Age: 45 Year
  Sex: Male

DRUGS (2)
  1. LENALIDOMIDE [Suspect]
     Active Substance: LENALIDOMIDE
     Indication: Swelling
  2. ZOMETA [Suspect]
     Active Substance: ZOLEDRONIC ACID
     Indication: Product used for unknown indication

REACTIONS (10)
  - Osteomyelitis [Recovered/Resolved]
  - Ophthalmic vein thrombosis [Recovered/Resolved]
  - Cardiac ventricular thrombosis [Recovered/Resolved]
  - Laboratory test abnormal [Recovered/Resolved]
  - Jaw fracture [Unknown]
  - Malaise [Unknown]
  - Osteoporosis [Unknown]
  - Plasma cell myeloma [Unknown]
  - Loss of consciousness [Unknown]
  - Off label use [Unknown]
